FAERS Safety Report 5852360-2 (Version None)
Quarter: 2008Q3

REPORT INFORMATION
  Report Type: 
  Country: None (occurrence: None)
  Receive Date: 20080821
  Receipt Date: 20080724
  Transmission Date: 20090109
  Serious: Yes (Hospitalization)
  Sender: FDA-Public Use
  Company Number: US-BRISTOL-MYERS SQUIBB COMPANY-14247027

PATIENT
  Age: 32 Year
  Sex: Female
  Weight: 90 kg

DRUGS (3)
  1. ERBITUX [Suspect]
     Indication: COLORECTAL CANCER METASTATIC
     Dosage: INITIAL DOSE ON 16JUN08; DISCONTINUED ON 23JUN2008.
     Route: 042
     Dates: start: 20080623, end: 20080623
  2. IRINOTECAN HCL [Suspect]
     Indication: COLORECTAL CANCER METASTATIC
     Dosage: INITIAL DOSE ON 16JUN08; INTERRUPTED ON 23JUN2008. RESTARTED ON 14JUL2008
     Route: 042
     Dates: start: 20080623, end: 20080623
  3. RAD001 [Suspect]
     Indication: COLORECTAL CANCER METASTATIC
     Dosage: INITIAL DOSE ON 16JUN08; INTERRUPTED ON 23JUN2008.
     Route: 048
     Dates: start: 20080628, end: 20080628

REACTIONS (2)
  - DIARRHOEA [None]
  - FEBRILE NEUTROPENIA [None]
